FAERS Safety Report 5045509-5 (Version None)
Quarter: 2006Q2

REPORT INFORMATION
  Report Type: 
  Country: None (occurrence: None)
  Receive Date: 20060601
  Receipt Date: 20060407
  Transmission Date: 20061013
  Serious: No
  Sender: FDA-Public Use
  Company Number: 2006-BP-04009BP

PATIENT
  Age: 53 Year
  Sex: Male

DRUGS (7)
  1. SPIRIVA [Suspect]
     Indication: ASTHMA
     Dosage: 18 MCG (18 MCG),IH
     Dates: start: 20060407
  2. SPIRIVA [Suspect]
  3. COMBIVENT (COMBIVENT /01261001/) [Concomitant]
  4. TYZINE (TETRYZOLINE HYDROCHLORIDE) [Concomitant]
  5. MONOPRIIL (FOSINOPRIL SODIUM) [Concomitant]
  6. ACTOS [Concomitant]
  7. CHROMIUM (CHROMIUM) [Concomitant]

REACTIONS (1)
  - BLOOD GLUCOSE INCREASED [None]
